FAERS Safety Report 7383139-0 (Version None)
Quarter: 2011Q1

REPORT INFORMATION
  Report Type: 
  Country: None (occurrence: None)
  Receive Date: 20110330
  Receipt Date: 20110325
  Transmission Date: 20110831
  Serious: Yes (Hospitalization, Other)
  Sender: FDA-Public Use
  Company Number: JP-BRACCO-004545

PATIENT
  Sex: Female
  Weight: 47 kg

DRUGS (9)
  1. COUMADIN [Concomitant]
  2. IOPAMIDOL [Suspect]
     Indication: ARTERIOGRAM CORONARY
     Route: 042
     Dates: start: 20110126, end: 20110126
  3. DEPAS [Concomitant]
  4. SILECE [Concomitant]
  5. IOPAMIDOL [Suspect]
     Indication: CORONARY ARTERY DISEASE
     Route: 042
     Dates: start: 20110126, end: 20110126
  6. LASIX [Concomitant]
  7. LIVALO [Suspect]
     Route: 048
     Dates: start: 20110127
  8. ARTIST [Concomitant]
  9. BLOPRESS [Concomitant]

REACTIONS (2)
  - CARDIAC FAILURE [None]
  - RHABDOMYOLYSIS [None]
